FAERS Safety Report 9695717 (Version 2)
Quarter: 2013Q4

REPORT INFORMATION
  Report Type: Spontaneous
  Country: AU (occurrence: AU)
  Receive Date: 20131119
  Receipt Date: 20131227
  Transmission Date: 20140711
  Serious: Yes (Other)
  Sender: FDA-Public Use
  Company Number: AU-009507513-1311AUS004820

PATIENT
  Age: 57 Year
  Sex: Male
  Weight: 77 kg

DRUGS (7)
  1. VICTRELIS 200 MG [Suspect]
     Indication: HEPATITIS C
     Dosage: 2400 UNIT, DAILY
     Route: 048
     Dates: start: 20120827, end: 20130214
  2. RIBAVIRIN [Suspect]
     Indication: HEPATITIS C
     Dosage: 2400 UNIT
     Route: 048
     Dates: start: 20120730, end: 20130917
  3. RIBAVIRIN [Suspect]
     Indication: LIVER DISORDER
     Dosage: 600 UNITS DAILY 2 DIVIDED DOSES
     Route: 048
     Dates: start: 20121004
  4. RIBAVIRIN [Suspect]
     Dosage: 800 UNITS DAILY
     Route: 048
     Dates: start: 20121108
  5. RIBAVIRIN [Suspect]
     Dosage: 1000 UNITS DAILY
     Route: 048
     Dates: start: 20121122, end: 20130214
  6. PEGASYS [Suspect]
     Indication: HEPATITIS C
     Dosage: 180 UNITS UNSPECIFIED, QW
     Route: 058
     Dates: start: 20120730, end: 20130214
  7. PEGASYS [Suspect]
     Indication: LIVER DISORDER

REACTIONS (2)
  - Rash [Recovering/Resolving]
  - Psoriasis [Unknown]
